FAERS Safety Report 5229305-1 (Version None)
Quarter: 2007Q1

REPORT INFORMATION
  Report Type: 
  Country: None (occurrence: None)
  Receive Date: 20061201
  Receipt Date: 20060920
  Transmission Date: 20070707
  Serious: No
  Sender: FDA-Public Use
  Company Number: US200609000717

PATIENT
  Age: 72 Year
  Sex: Female
  Weight: 90.2 kg

DRUGS (4)
  1. CYMBALTA [Suspect]
     Indication: BACK PAIN
     Dosage: 60 MG UNK ORAL ; 30 MG ORAL
     Route: 048
     Dates: end: 20060715
  2. CYMBALTA [Suspect]
     Indication: BACK PAIN
     Dosage: 60 MG UNK ORAL ; 30 MG ORAL
     Route: 048
     Dates: start: 20060630
  3. HYDROCHLOROTHIAZIDE (HYCHLOROTHIAZIDE) [Concomitant]
  4. ATENOLOL [Concomitant]

REACTIONS (1)
  - TRISMUS [None]
